FAERS Safety Report 12560202 (Version 2)
Quarter: 2016Q4

REPORT INFORMATION
  Report Type: Spontaneous
  Country: US (occurrence: US)
  Receive Date: 20160715
  Receipt Date: 20161004
  Transmission Date: 20170207
  Serious: No
  Sender: FDA-Public Use
  Company Number: US-JNJFOC-20160526857

PATIENT
  Age: 80 Year
  Sex: Male
  Weight: 71.67 kg

DRUGS (3)
  1. TERAZOSIN [Concomitant]
     Active Substance: TERAZOSIN\TERAZOSIN HYDROCHLORIDE
     Indication: HYPERTENSION
     Dosage: 5 ML ONCE A DAY FOR 5 YEARS.
     Route: 065
  2. MENS ROGAINE EXTRA STRENGTH [Suspect]
     Active Substance: MINOXIDIL
     Indication: ALOPECIA
     Dosage: 1/2 CAPFUL
     Route: 061
     Dates: start: 20160512, end: 201606
  3. MENS ROGAINE EXTRA STRENGTH [Suspect]
     Active Substance: MINOXIDIL
     Route: 061

REACTIONS (8)
  - Dizziness postural [Recovered/Resolved]
  - Oral herpes [Recovering/Resolving]
  - Paraesthesia [Recovered/Resolved]
  - Feeling abnormal [Recovered/Resolved]
  - Pruritus [Recovering/Resolving]
  - Hypertension [Recovered/Resolved]
  - Erythema [Recovering/Resolving]
  - Contraindicated product administered [Recovering/Resolving]

NARRATIVE: CASE EVENT DATE: 20160519
